FAERS Safety Report 6452296-2 (Version None)
Quarter: 2009Q4

REPORT INFORMATION
  Report Type: 
  Country: None (occurrence: None)
  Receive Date: 20091117
  Receipt Date: 20091109
  Transmission Date: 20100525
  Serious: Yes (Hospitalization)
  Sender: FDA-Public Use
  Company Number: 2009SP035816

PATIENT
  Age: 50 Year
  Sex: Male

DRUGS (4)
  1. ORGARAN [Suspect]
     Indication: HEPARIN-INDUCED THROMBOCYTOPENIA
     Dosage: 250 IU;QH;IV
     Route: 042
     Dates: start: 20091001, end: 20091102
  2. DOBUTAMINE (CON.) [Concomitant]
  3. LASILIX (CON.) [Concomitant]
  4. DIGOXINE (CON.) [Concomitant]

REACTIONS (2)
  - SKIN NECROSIS [None]
  - TOXIC SKIN ERUPTION [None]
